FAERS Safety Report 16712082 (Version 1)
Quarter: 2019Q3

REPORT INFORMATION
  Report Type: Spontaneous
  Country: HR (occurrence: HR)
  Receive Date: 20190816
  Receipt Date: 20190816
  Transmission Date: 20191004
  Serious: Yes (Other)
  Sender: FDA-Public Use
  Company Number: HR-TEVA-2019-HR-1092878

PATIENT
  Age: 12 Year
  Sex: Female
  Weight: 54 kg

DRUGS (3)
  1. DIAZEPAM. [Suspect]
     Active Substance: DIAZEPAM
     Dosage: 80 MILLIGRAM
     Route: 048
     Dates: start: 20190607, end: 20190607
  2. PARACETAMOL [Suspect]
     Active Substance: ACETAMINOPHEN
     Dosage: 6 GRAM
     Route: 048
     Dates: start: 20190607, end: 20190607
  3. IBUPROFEN. [Suspect]
     Active Substance: IBUPROFEN
     Dosage: 2400 MILLIGRAM
     Route: 048
     Dates: start: 20190607, end: 20190607

REACTIONS (2)
  - Intentional overdose [Unknown]
  - Suicide attempt [Unknown]

NARRATIVE: CASE EVENT DATE: 20190607
